FAERS Safety Report 19179024 (Version 1)
Quarter: 2021Q2

REPORT INFORMATION
  Report Type: Spontaneous
  Country: US (occurrence: US)
  Receive Date: 20210423
  Receipt Date: 20210423
  Transmission Date: 20210717
  Serious: No
  Sender: FDA-Public Use
  Company Number: None

PATIENT
  Age: 41 Year
  Sex: Male
  Weight: 98.42 kg

DRUGS (4)
  1. LITHIUM. [Concomitant]
     Active Substance: LITHIUM
  2. OXYBUTYNIN ER [Suspect]
     Active Substance: OXYBUTYNIN
     Dates: start: 20201109, end: 20201125
  3. GABAPENTIN. [Concomitant]
     Active Substance: GABAPENTIN
  4. OLANZAPINE 5MG [Suspect]
     Active Substance: OLANZAPINE

REACTIONS (3)
  - Enuresis [None]
  - Ejaculation disorder [None]
  - Therapy interrupted [None]

NARRATIVE: CASE EVENT DATE: 20201125
